FAERS Safety Report 13139737 (Version 1)
Quarter: 2017Q1

REPORT INFORMATION
  Report Type: Spontaneous
  Country: US (occurrence: US)
  Receive Date: 20170123
  Receipt Date: 20170123
  Transmission Date: 20170428
  Serious: No
  Sender: FDA-Public Use
  Company Number: US-DEXPHARM-20161339

PATIENT
  Age: 57 Year
  Sex: Male
  Weight: 62.58 kg

DRUGS (1)
  1. OMEPRAZOLE DELAYED RELEASE [Suspect]
     Active Substance: OMEPRAZOLE
     Indication: FLATULENCE
     Dosage: 20 MG, QD
     Route: 048
     Dates: start: 20160523, end: 20160620

REACTIONS (3)
  - Diarrhoea [Not Recovered/Not Resolved]
  - Drug ineffective for unapproved indication [Unknown]
  - Abdominal discomfort [Not Recovered/Not Resolved]

NARRATIVE: CASE EVENT DATE: 20160523
